FAERS Safety Report 19651360 (Version 2)
Quarter: 2021Q3

REPORT INFORMATION
  Report Type: Report from Study
  Country: US (occurrence: US)
  Receive Date: 20210803
  Receipt Date: 20210911
  Transmission Date: 20211014
  Serious: Yes (Other)
  Sender: FDA-Public Use
  Company Number: US-UCBSA-2021023807

PATIENT
  Age: 32 Year
  Sex: Female

DRUGS (2)
  1. CERTOLIZUMAB PEGOL [Suspect]
     Active Substance: CERTOLIZUMAB PEGOL
     Indication: RHEUMATOID ARTHRITIS
     Dosage: 400 MILLIGRAM, EV 2 WEEKS(QOW)
     Dates: start: 20210513, end: 2021
  2. CERTOLIZUMAB PEGOL [Suspect]
     Active Substance: CERTOLIZUMAB PEGOL
     Dosage: 200 MILLIGRAM, EV 2 WEEKS(QOW)
     Dates: start: 2021

REACTIONS (12)
  - Rheumatoid arthritis [Recovering/Resolving]
  - Anti-Muellerian hormone level decreased [Recovered/Resolved]
  - Inappropriate schedule of product administration [Unknown]
  - Abortion spontaneous [Recovered/Resolved]
  - Maternal exposure before pregnancy [Unknown]
  - Maternal exposure during pregnancy [Unknown]
  - Exposure to SARS-CoV-2 [Unknown]
  - Injection site rash [Recovering/Resolving]
  - Pain in extremity [Recovered/Resolved]
  - Injection site discolouration [Recovered/Resolved]
  - Urticaria [Recovering/Resolving]
  - SARS-CoV-2 test negative [Unknown]

NARRATIVE: CASE EVENT DATE: 2021
